FAERS Safety Report 5133230-4 (Version None)
Quarter: 2006Q4

REPORT INFORMATION
  Report Type: 
  Country: None (occurrence: None)
  Receive Date: 20061018
  Receipt Date: 20061005
  Transmission Date: 20070319
  Serious: Yes (Other)
  Sender: FDA-Public Use
  Company Number: 220001M06AUT

PATIENT
  Age: 14 Year
  Sex: Male
  Weight: 33 kg

DRUGS (1)
  1. SAIZEN [Suspect]
     Indication: GROWTH HORMONE DEFICIENCY
     Dosage: 1.05 MG, 7 IN 1 WEEKS, SUBCUTANEOUS
     Route: 058
     Dates: start: 19991215, end: 20061004

REACTIONS (2)
  - ARTHRALGIA [None]
  - OSTEONECROSIS [None]
